FAERS Safety Report 18727430 (Version 3)
Quarter: 2025Q3

REPORT INFORMATION
  Report Type: Report from Study
  Country: CA (occurrence: CA)
  Receive Date: 20210112
  Receipt Date: 20250725
  Transmission Date: 20251020
  Serious: Yes (Hospitalization, Other)
  Sender: TAKEDA
  Company Number: CA-TAKEDA-2018TUS023543

PATIENT
  Age: 82 Year
  Sex: Male

DRUGS (32)
  1. VEDOLIZUMAB [Suspect]
     Active Substance: VEDOLIZUMAB
     Indication: Colitis ulcerative
  2. VEDOLIZUMAB [Suspect]
     Active Substance: VEDOLIZUMAB
  3. VEDOLIZUMAB [Suspect]
     Active Substance: VEDOLIZUMAB
  4. VEDOLIZUMAB [Suspect]
     Active Substance: VEDOLIZUMAB
     Dosage: 300 MILLIGRAM, Q4WEEKS
     Dates: start: 20200110
  5. VEDOLIZUMAB [Suspect]
     Active Substance: VEDOLIZUMAB
     Dosage: 300 MILLIGRAM, Q4WEEKS
  6. VEDOLIZUMAB [Suspect]
     Active Substance: VEDOLIZUMAB
     Dosage: 300 MILLIGRAM, Q4WEEKS
  7. VEDOLIZUMAB [Suspect]
     Active Substance: VEDOLIZUMAB
     Dosage: 300 MILLIGRAM, Q4WEEKS
  8. HYDRALAZINE [Concomitant]
     Active Substance: HYDRALAZINE HYDROCHLORIDE
  9. TERAZOSIN [Concomitant]
     Active Substance: TERAZOSIN HYDROCHLORIDE
  10. TRANDATE [Concomitant]
     Active Substance: LABETALOL HYDROCHLORIDE
  11. APIXABAN [Concomitant]
     Active Substance: APIXABAN
  12. CRESTOR [Concomitant]
     Active Substance: ROSUVASTATIN CALCIUM
  13. NIACIN [Concomitant]
     Active Substance: NIACIN
  14. ALLOPURINOL [Concomitant]
     Active Substance: ALLOPURINOL
  15. GABAPENTIN [Concomitant]
     Active Substance: GABAPENTIN
  16. PENTASA [Concomitant]
     Active Substance: MESALAMINE
  17. COSOPT [Concomitant]
     Active Substance: DORZOLAMIDE HYDROCHLORIDE\TIMOLOL MALEATE
  18. CARBIDOPA\LEVODOPA [Concomitant]
     Active Substance: CARBIDOPA\LEVODOPA
  19. ACETAMINOPHEN\TRAMADOL [Concomitant]
     Active Substance: ACETAMINOPHEN\TRAMADOL
  20. IRON [Concomitant]
     Active Substance: IRON
  21. VITAMIN C [Concomitant]
     Active Substance: ASCORBIC ACID
  22. VITAMIN D [Concomitant]
     Active Substance: VITAMIN D NOS
  23. VITAMIN B12 [Concomitant]
     Active Substance: CYANOCOBALAMIN
  24. LEVOTHYROXINE [Concomitant]
     Active Substance: LEVOTHYROXINE
  25. PANTOPRAZOLE [Concomitant]
     Active Substance: PANTOPRAZOLE
  26. PREGABALIN [Concomitant]
     Active Substance: PREGABALIN
  27. ISOSORBIDE [Concomitant]
     Active Substance: ISOSORBIDE
  28. FERROUS SULFATE [Concomitant]
     Active Substance: FERROUS SULFATE
  29. ROSUVASTATIN [Concomitant]
     Active Substance: ROSUVASTATIN
  30. LUMIGAN [Concomitant]
     Active Substance: BIMATOPROST
  31. SPIRONOLACTONE [Concomitant]
     Active Substance: SPIRONOLACTONE
  32. AMIODARONE [Concomitant]
     Active Substance: AMIODARONE

REACTIONS (2)
  - Clostridium difficile infection [Recovering/Resolving]
  - Off label use [Recovering/Resolving]

NARRATIVE: CASE EVENT DATE: 20200110
